FAERS Safety Report 12479135 (Version 1)
Quarter: 2016Q2

REPORT INFORMATION
  Report Type: Report from Study
  Country: DK (occurrence: DK)
  Receive Date: 20160620
  Receipt Date: 20160620
  Transmission Date: 20160815
  Serious: Yes (Hospitalization)
  Sender: FDA-Public Use
  Company Number: DK-ACCORD-041754

PATIENT
  Age: 53 Year
  Sex: Female
  Weight: 75 kg

DRUGS (13)
  1. FOLINIC ACID [Suspect]
     Active Substance: LEUCOVORIN
     Indication: COLORECTAL CANCER METASTATIC
     Route: 042
     Dates: start: 20151016
  2. PREDNISOLONE. [Concomitant]
     Active Substance: PREDNISOLONE
     Indication: PROPHYLAXIS
     Dates: start: 20151016
  3. IMOLOPE [Concomitant]
     Indication: PROPHYLAXIS
     Dates: start: 20151016, end: 20151029
  4. ALOXI [Concomitant]
     Active Substance: PALONOSETRON HYDROCHLORIDE
     Indication: PROPHYLAXIS
     Dates: start: 20151016
  5. FLUOROURACIL. [Suspect]
     Active Substance: FLUOROURACIL
     Indication: COLORECTAL CANCER METASTATIC
     Route: 042
     Dates: start: 20151016
  6. ALUMINIUM HYDROXIDE/MAGNESIUM HYDROXIDE [Concomitant]
     Indication: PROPHYLAXIS
     Dates: start: 20151016
  7. OXALIPLATIN. [Suspect]
     Active Substance: OXALIPLATIN
     Indication: COLORECTAL CANCER METASTATIC
     Route: 042
     Dates: start: 20151016
  8. CONTALGIN [Concomitant]
     Active Substance: MORPHINE SULFATE
     Dates: start: 20150929
  9. AVASTIN [Suspect]
     Active Substance: BEVACIZUMAB
     Indication: COLORECTAL CANCER METASTATIC
     Route: 042
     Dates: start: 20151030
  10. DOLOPROCT [Concomitant]
     Active Substance: FLUOCORTOLONE PIVALATE\LIDOCAINE HYDROCHLORIDE
  11. TOILAX [Concomitant]
     Active Substance: BISACODYL
     Indication: PROPHYLAXIS
  12. MOTILIUM [Concomitant]
     Active Substance: DOMPERIDONE
     Indication: PROPHYLAXIS
     Dates: start: 20151016
  13. XELODA [Suspect]
     Active Substance: CAPECITABINE
     Indication: COLORECTAL CANCER METASTATIC

REACTIONS (2)
  - Pyrexia [Unknown]
  - Vomiting [Recovered/Resolved]

NARRATIVE: CASE EVENT DATE: 20151030
